FAERS Safety Report 11692714 (Version 1)
Quarter: 2015Q4

REPORT INFORMATION
  Report Type: Spontaneous
  Country: US (occurrence: US)
  Receive Date: 20151103
  Receipt Date: 20151103
  Transmission Date: 20160304
  Serious: Yes (Life-Threatening)
  Sender: FDA-Public Use
  Company Number: US-ASTRAZENECA-2015SF04640

PATIENT
  Sex: Male
  Weight: 131.5 kg

DRUGS (1)
  1. BYDUREON [Suspect]
     Active Substance: EXENATIDE
     Indication: TYPE 2 DIABETES MELLITUS
     Route: 058

REACTIONS (6)
  - Weight increased [Unknown]
  - Back disorder [Unknown]
  - Fatty liver alcoholic [Unknown]
  - Weight decreased [Unknown]
  - Thyroid hormones decreased [Unknown]
  - Suicidal ideation [Unknown]
